FAERS Safety Report 9058614 (Version 2)
Quarter: 2013Q4

REPORT INFORMATION
  Report Type: Spontaneous
  Country: JP (occurrence: JP)
  Receive Date: 20130211
  Receipt Date: 20131031
  Transmission Date: 20140711
  Serious: Yes (Death)
  Sender: FDA-Public Use
  Company Number: JP-EISAI-201210784

PATIENT
  Age: 57 Year
  Sex: Male
  Weight: 64 kg

DRUGS (17)
  1. LUNESTA [Suspect]
     Indication: INSOMNIA
     Route: 048
     Dates: start: 20121214, end: 20121221
  2. ZYPREXA [Suspect]
     Indication: SCHIZOPHRENIA
     Route: 030
     Dates: start: 20121217, end: 20121218
  3. ZYPREXA [Suspect]
     Indication: SCHIZOPHRENIA
     Dates: start: 20121219, end: 20121220
  4. SERENACE [Concomitant]
     Indication: DIET REFUSAL
     Dates: start: 20121214, end: 20121220
  5. SERENACE [Concomitant]
     Indication: DIET REFUSAL
     Route: 030
     Dates: start: 20121221, end: 20121221
  6. ABILIFY [Concomitant]
     Indication: SCHIZOPHRENIA
     Dates: start: 20121219, end: 20121221
  7. ABILIFY [Concomitant]
     Indication: DIET REFUSAL
     Dates: start: 20121219, end: 20121221
  8. ABILIFY [Concomitant]
     Indication: SCHIZOPHRENIA
     Dates: start: 20121222, end: 20121222
  9. ABILIFY [Concomitant]
     Indication: DIET REFUSAL
     Dates: start: 20121222, end: 20121222
  10. ABILIFY [Concomitant]
     Indication: SCHIZOPHRENIA
     Dates: start: 20121222, end: 20121222
  11. ABILIFY [Concomitant]
     Indication: DIET REFUSAL
     Dates: start: 20121222, end: 20121222
  12. HALOMONTH [Concomitant]
     Indication: PRODUCT USED FOR UNKNOWN INDICATION
     Route: 030
     Dates: start: 20121203, end: 20121203
  13. ROHYPNOL [Concomitant]
     Indication: PSYCHOMOTOR HYPERACTIVITY
     Route: 042
     Dates: start: 20121213, end: 20121213
  14. AKINETON /00079501/ [Concomitant]
     Indication: SALIVARY HYPERSECRETION
     Dates: start: 20121221, end: 20121222
  15. AKINETON /00079501/ [Concomitant]
     Indication: DIET REFUSAL
     Dates: start: 20121221, end: 20121222
  16. AKINETON /00079501/ [Concomitant]
     Indication: SALIVARY HYPERSECRETION
     Route: 030
     Dates: start: 20121221, end: 20121221
  17. AKINETON /00079501/ [Concomitant]
     Indication: DIET REFUSAL
     Route: 030
     Dates: start: 20121221, end: 20121221

REACTIONS (2)
  - Respiratory failure [Fatal]
  - Cardiac failure [Fatal]
